FAERS Safety Report 7570335-2 (Version None)
Quarter: 2011Q2

REPORT INFORMATION
  Report Type: 
  Country: None (occurrence: None)
  Receive Date: 20110622
  Receipt Date: 20110622
  Transmission Date: 20111010
  Serious: Yes (Hospitalization)
  Sender: FDA-Public Use
  Company Number: None

PATIENT
  Sex: Female
  Weight: 72.12 kg

DRUGS (2)
  1. CARBOPLATIN [Suspect]
     Dosage: 532 MG
  2. TAXOL [Suspect]
     Dosage: 315 MG

REACTIONS (2)
  - HAEMOGLOBIN DECREASED [None]
  - MESENTERIC VEIN THROMBOSIS [None]
